FAERS Safety Report 16424314 (Version 1)
Quarter: 2019Q2

REPORT INFORMATION
  Report Type: Spontaneous
  Country: DE (occurrence: DE)
  Receive Date: 20190613
  Receipt Date: 20190613
  Transmission Date: 20190711
  Serious: Yes (Other)
  Sender: FDA-Public Use
  Company Number: DE-TEVA-2019-DE-1060292

PATIENT
  Age: 61 Year
  Sex: Male

DRUGS (2)
  1. ATORVASTATIN-RATIOPHARM 10 MG FILMTABLETTEN [Suspect]
     Active Substance: ATORVASTATIN
     Indication: C-REACTIVE PROTEIN INCREASED
     Dosage: 10 MILLIGRAM DAILY; FOR YEARS
     Route: 048
  2. BRIMICA [Concomitant]
     Active Substance: ACLIDINIUM BROMIDE\FORMOTEROL FUMARATE
     Indication: CHRONIC OBSTRUCTIVE PULMONARY DISEASE

REACTIONS (3)
  - Vasculitis [Recovered/Resolved]
  - Muscle disorder [Recovered/Resolved]
  - Product substitution issue [Unknown]
